FAERS Safety Report 14927105 (Version 4)
Quarter: 2018Q3

REPORT INFORMATION
  Report Type: Report from Study
  Country: FI (occurrence: FI)
  Receive Date: 20180523
  Receipt Date: 20180828
  Transmission Date: 20181010
  Serious: Yes (Hospitalization)
  Sender: FDA-Public Use
  Company Number: FI-EISAI MEDICAL RESEARCH-EC-2018-040035

PATIENT
  Age: 68 Year
  Sex: Female
  Weight: 76 kg

DRUGS (10)
  1. LENVATINIB [Suspect]
     Active Substance: LENVATINIB
     Route: 048
     Dates: start: 20180518
  2. ORMOX [Concomitant]
  3. PREDNISOLON [Concomitant]
     Active Substance: PREDNISOLONE
  4. CARDACE [Concomitant]
     Active Substance: RAMIPRIL
  5. EMCONCOR [Concomitant]
     Active Substance: BISOPROLOL FUMARATE
  6. EVEROLIMUS. [Suspect]
     Active Substance: EVEROLIMUS
     Route: 048
     Dates: start: 20180518
  7. OMEPRAZOL [Concomitant]
     Active Substance: OMEPRAZOLE
  8. PRIMASPAN [Concomitant]
     Active Substance: ASPIRIN
  9. LENVATINIB [Suspect]
     Active Substance: LENVATINIB
     Indication: RENAL CELL CARCINOMA
     Route: 048
     Dates: start: 20180424, end: 20180515
  10. EVEROLIMUS. [Suspect]
     Active Substance: EVEROLIMUS
     Indication: RENAL CELL CARCINOMA
     Route: 048
     Dates: start: 20180424, end: 20180515

REACTIONS (1)
  - Deep vein thrombosis [Recovered/Resolved]

NARRATIVE: CASE EVENT DATE: 20180515
